FAERS Safety Report 8435547-4 (Version None)
Quarter: 2012Q2

REPORT INFORMATION
  Report Type: 
  Country: None (occurrence: None)
  Receive Date: 20120614
  Receipt Date: 20120608
  Transmission Date: 20120825
  Serious: Yes (Hospitalization, Other)
  Sender: FDA-Public Use
  Company Number: LU-PFIZER INC-2012135820

PATIENT
  Sex: Male

DRUGS (5)
  1. LISINOPRIL [Concomitant]
     Dosage: 10 MG, UNK
  2. ACETYLSALICYLIC ACID [Concomitant]
     Dosage: 100 MG, UNK
  3. LYRICA [Suspect]
     Dosage: 300 MG, 2X/DAY
     Route: 048
     Dates: start: 20120301
  4. SIMVASTATIN [Concomitant]
     Dosage: 20 MG, UNK
  5. OXYCONTIN [Concomitant]
     Dosage: 30 MG, UNK

REACTIONS (2)
  - NEPHROPATHY TOXIC [None]
  - ANURIA [None]
